FAERS Safety Report 9747995 (Version 1)
Quarter: 2013Q4

REPORT INFORMATION
  Report Type: Spontaneous
  Country: GB (occurrence: None)
  Receive Date: 20131206
  Receipt Date: 20131206
  Transmission Date: 20140711
  Serious: Yes (Death)
  Sender: FDA-Public Use
  Company Number: 2013AP010108

PATIENT
  Age: 37 Year
  Sex: Male

DRUGS (18)
  1. OMEPRAZOLE (OMEPRAZOLE) [Suspect]
     Indication: PRODUCT USED FOR UNKNOWN INDICATION
     Dates: end: 201208
  2. BUPRENORPHINE [Suspect]
     Indication: DRUG DEPENDENCE
     Dosage: 20 MG; QD
     Dates: start: 201102, end: 2012
  3. CODEINE (CODEINE) [Suspect]
     Indication: BACK PAIN
     Dosage: UNKNOWN; TAB; UNK; UNKNOWN
     Dates: end: 201208
  4. DIAZEPAM [Suspect]
     Indication: PRODUCT USED FOR UNKNOWN INDICATION
     Dates: end: 201208
  5. ETHANOL (ETHANOL) (UNKNOWN) (ETHANOL) [Suspect]
     Indication: PRODUCT USED FOR UNKNOWN INDICATION
     Dates: end: 201208
  6. HEROIN (DIAMORPHINE) (DIAMORPHINE) [Suspect]
     Dosage: 0.5 G; UNKNOWN; QD
  7. IRON [Suspect]
     Indication: PRODUCT USED FOR UNKNOWN INDICATION
     Dates: end: 2012
  8. METHADONE (METHADONE) [Suspect]
     Indication: PRODUCT USED FOR UNKNOWN INDICATION
     Dates: end: 201208
  9. MIRTAZAPINE (MIRTAZAPINE) [Suspect]
     Indication: ANXIETY
     Dosage: 45 MG; UNKNOWN; QD
     Dates: end: 201208
  10. NITRAZEPAM (NITRAZEPAM) [Suspect]
     Indication: PRODUCT USED FOR UNKNOWN INDICATION
     Dates: end: 201208
  11. NOSCAPINE [Suspect]
  12. PAPAVERINE [Suspect]
     Indication: PRODUCT USED FOR UNKNOWN INDICATION
     Dates: end: 201208
  13. STEROID ANTIBACTERIALS [Suspect]
     Indication: PRODUCT USED FOR UNKNOWN INDICATION
     Dates: end: 2012
  14. SUBUTEX (BUPRENORPHINE HYDROCHLORIDE) [Suspect]
     Indication: PRODUCT USED FOR UNKNOWN INDICATION
     Dates: start: 20120830, end: 20120830
  15. COCAINE (COCAINE) [Concomitant]
  16. WARFARIN (WARFARIN) [Concomitant]
  17. MEBEVERINE (MEBEVERINE) [Concomitant]
  18. ZOPICLONE (ZOPICLONE) [Concomitant]

REACTIONS (6)
  - Drug abuse [None]
  - Overdose [None]
  - Drug ineffective [None]
  - Feeling abnormal [None]
  - Swelling face [None]
  - Toxicity to various agents [None]
